FAERS Safety Report 20783773 (Version 1)
Quarter: 2022Q2

REPORT INFORMATION
  Report Type: Spontaneous
  Country: US (occurrence: US)
  Receive Date: 20220504
  Receipt Date: 20220504
  Transmission Date: 20220721
  Serious: No
  Sender: FDA-Public Use
  Company Number: US-PFIZER INC-202101030120

PATIENT
  Sex: Male

DRUGS (2)
  1. EFFEXOR XR [Suspect]
     Active Substance: VENLAFAXINE HYDROCHLORIDE
     Indication: Schizophrenia
     Dosage: 300 MG
  2. RISPERIDONE AN [Concomitant]
     Indication: Schizophrenia

REACTIONS (1)
  - Therapeutic product effect decreased [Unknown]
